FAERS Safety Report 9291771 (Version 1)
Quarter: 2013Q2

REPORT INFORMATION
  Report Type: Spontaneous
  Country: NO (occurrence: NO)
  Receive Date: 20130516
  Receipt Date: 20130516
  Transmission Date: 20140414
  Serious: Yes (Other)
  Sender: FDA-Public Use
  Company Number: NO-ROCHE-1223869

PATIENT
  Age: 60 Year
  Sex: Male

DRUGS (2)
  1. AVASTIN [Suspect]
     Indication: AGE-RELATED MACULAR DEGENERATION
     Route: 065
  2. AVASTIN [Suspect]
     Indication: OFF LABEL USE

REACTIONS (8)
  - Headache [Unknown]
  - Musculoskeletal stiffness [Unknown]
  - Foreign body sensation in eyes [Unknown]
  - Eye pain [Not Recovered/Not Resolved]
  - Eye infection [Recovered/Resolved]
  - Peripheral coldness [Unknown]
  - Fatigue [Unknown]
  - Fatigue [Unknown]
